FAERS Safety Report 5445159-2 (Version None)
Quarter: 2007Q3

REPORT INFORMATION
  Report Type: 
  Country: None (occurrence: None)
  Receive Date: 20070730
  Receipt Date: 20070327
  Transmission Date: 20080115
  Serious: Yes (Hospitalization)
  Sender: FDA-Public Use
  Company Number: 237910

PATIENT
  Age: 57 Year
  Sex: Female

DRUGS (6)
  1. RITUXAN [Suspect]
     Indication: NON-HODGKIN'S LYMPHOMA
     Dosage: 375 MG/M2, INTRAVENOUS
     Route: 042
     Dates: start: 20050503
  2. PROTONIX [Concomitant]
  3. ZETIA [Concomitant]
  4. MORPHINE SULFATE [Concomitant]
  5. DYAZIDE [Concomitant]
  6. FENTANYL PATCH (FENTANYL CITRATE) [Concomitant]

REACTIONS (3)
  - CARDIOMYOPATHY [None]
  - MYOCARDIAL INFARCTION [None]
  - RASH [None]
